FAERS Safety Report 9612641 (Version 1)
Quarter: 2013Q4

REPORT INFORMATION
  Report Type: Spontaneous
  Country: US (occurrence: None)
  Receive Date: 20131008
  Receipt Date: 20131008
  Transmission Date: 20140711
  Serious: Yes (Hospitalization)
  Sender: FDA-Public Use
  Company Number: 2013AP008453

PATIENT
  Age: 24 Year
  Sex: Female
  Weight: 61 kg

DRUGS (2)
  1. FERRIPROX [Suspect]
     Indication: SICKLE CELL ANAEMIA
     Dosage: 25 MG/KG; QD; PO
     Route: 048
     Dates: start: 201308, end: 201309
  2. FERRIPROX [Suspect]
     Indication: HAEMOCHROMATOSIS
     Dosage: 25 MG/KG; QD; PO
     Route: 048
     Dates: start: 201308, end: 201309

REACTIONS (1)
  - Asthma [None]
